FAERS Safety Report 8205512-0 (Version None)
Quarter: 2012Q1

REPORT INFORMATION
  Report Type: 
  Country: None (occurrence: None)
  Receive Date: 20120313
  Receipt Date: 20120116
  Transmission Date: 20120608
  Serious: No
  Sender: FDA-Public Use
  Company Number: PHHY2012KR004205

PATIENT
  Sex: Female
  Weight: 65 kg

DRUGS (2)
  1. EXJADE [Suspect]
     Indication: APLASTIC ANAEMIA
  2. EXJADE [Suspect]
     Indication: IRON OVERLOAD
     Dosage: 500 MG, UNK
     Route: 048
     Dates: start: 20100712

REACTIONS (3)
  - SERUM FERRITIN ABNORMAL [None]
  - PLATELET DISORDER [None]
  - PLATELET COUNT ABNORMAL [None]
